FAERS Safety Report 17835428 (Version 1)
Quarter: 2020Q2

REPORT INFORMATION
  Report Type: Spontaneous
  Country: ES (occurrence: ES)
  Receive Date: 20200528
  Receipt Date: 20200528
  Transmission Date: 20200714
  Serious: Yes (Other)
  Sender: FDA-Public Use
  Company Number: ES-JNJFOC-20200531329

PATIENT
  Age: 73 Year
  Sex: Male

DRUGS (1)
  1. DUROGESIC MATRIX [Suspect]
     Active Substance: FENTANYL
     Indication: LUNG NEOPLASM
     Route: 062
     Dates: start: 20200504, end: 20200513

REACTIONS (3)
  - Hallucination, visual [Unknown]
  - Off label use [Unknown]
  - Product use in unapproved indication [Unknown]

NARRATIVE: CASE EVENT DATE: 20200504
